FAERS Safety Report 19508913 (Version 2)
Quarter: 2021Q3

REPORT INFORMATION
  Report Type: Report from Study
  Country: US (occurrence: US)
  Receive Date: 20210709
  Receipt Date: 20210908
  Transmission Date: 20211014
  Serious: Yes (Hospitalization)
  Sender: FDA-Public Use
  Company Number: US-BIOGEN-2021BI01027591

PATIENT
  Age: 40 Year
  Sex: Female

DRUGS (3)
  1. COVID 19 VACCINE (PFIZER) [Concomitant]
     Dosage: PFIZER VACCINE DOSES 01 APR AND 22 APR 2021
     Route: 065
     Dates: start: 20210422, end: 20210422
  2. COVID 19 VACCINE (PFIZER) [Concomitant]
     Indication: COVID-19 PROPHYLAXIS
     Dosage: PFIZER VACCINE DOSES 01 APR AND 22 APR 2021
     Route: 065
     Dates: start: 20210401, end: 20210401
  3. TYSABRI [Suspect]
     Active Substance: NATALIZUMAB
     Indication: MULTIPLE SCLEROSIS
     Route: 065
     Dates: start: 20200721

REACTIONS (1)
  - COVID-19 [Unknown]

NARRATIVE: CASE EVENT DATE: 20210506
